FAERS Safety Report 17872196 (Version 2)
Quarter: 2020Q2

REPORT INFORMATION
  Report Type: Report from Study
  Country: US (occurrence: US)
  Receive Date: 20200608
  Receipt Date: 20200622
  Transmission Date: 20200714
  Serious: Yes (Other)
  Sender: FDA-Public Use
  Company Number: US-JNJFOC-20200604445

PATIENT
  Age: 63 Year
  Sex: Female

DRUGS (1)
  1. ELMIRON [Suspect]
     Active Substance: PENTOSAN POLYSULFATE SODIUM
     Indication: CYSTITIS INTERSTITIAL
     Dosage: THE PATIENT^S DAILY DOSE BY BODY WEIGHT WAS 6.1 MG/M
     Route: 065

REACTIONS (1)
  - Maculopathy [Unknown]
